FAERS Safety Report 8923898 (Version 1)
Quarter: 2012Q4

REPORT INFORMATION
  Report Type: 
  Country: AT (occurrence: AT)
  Receive Date: 20121126
  Receipt Date: 20121126
  Transmission Date: 20130627
  Serious: Yes (Hospitalization, Other)
  Sender: FDA-Public Use
  Company Number: AT-ABBOTT-12P-009-1011625-00

PATIENT
  Age: 41 None
  Sex: Female

DRUGS (1)
  1. HUMIRA [Suspect]
     Indication: CROHN^S DISEASE
     Dates: start: 20120712, end: 20120906

REACTIONS (3)
  - Dermatitis [Recovered/Resolved]
  - Eye inflammation [Recovered/Resolved]
  - Intestinal operation [Recovered/Resolved]
